FAERS Safety Report 8486583-3 (Version None)
Quarter: 2012Q3

REPORT INFORMATION
  Report Type: 
  Country: None (occurrence: None)
  Receive Date: 20120703
  Receipt Date: 20120619
  Transmission Date: 20120928
  Serious: Yes (Other)
  Sender: FDA-Public Use
  Company Number: TW-GILEAD-2012-0057111

PATIENT
  Age: 74 Year
  Sex: Male

DRUGS (2)
  1. ADEFOVIR DIPIVOXIL [Suspect]
     Indication: HEPATITIS B
     Dosage: 10 MG, QD
  2. LAMIVUDINE [Suspect]
     Indication: HEPATITIS B
     Dosage: 100 MG, QD
     Route: 048

REACTIONS (3)
  - VIRAL LOAD INCREASED [None]
  - ALANINE AMINOTRANSFERASE INCREASED [None]
  - DRUG RESISTANCE [None]
